FAERS Safety Report 5140943-7 (Version None)
Quarter: 2006Q4

REPORT INFORMATION
  Report Type: 
  Country: None (occurrence: None)
  Receive Date: 20061025
  Receipt Date: 20061025
  Transmission Date: 20070319
  Serious: Yes (Hospitalization)
  Sender: FDA-Public Use
  Company Number: None

PATIENT
  Age: 81 Year
  Sex: Male
  Weight: 77.5651 kg

DRUGS (2)
  1. INSULIN GLARGINE [Suspect]
     Dosage: 40 UNITS QD
  2. AMARYL [Suspect]
     Dosage: 2 MG PO QD
     Route: 048

REACTIONS (4)
  - HYPOGLYCAEMIA [None]
  - LETHARGY [None]
  - LOSS OF CONSCIOUSNESS [None]
  - MENTAL STATUS CHANGES [None]
